FAERS Safety Report 4513517-6 (Version None)
Quarter: 2004Q4

REPORT INFORMATION
  Report Type: 
  Country: None (occurrence: None)
  Receive Date: 20041130
  Receipt Date: 20041123
  Transmission Date: 20050328
  Serious: Yes (Other)
  Sender: FDA-Public Use
  Company Number: ES-JNJFOC-20041105844

PATIENT
  Sex: Male

DRUGS (2)
  1. RISPERDAL [Suspect]
     Route: 049
  2. AKINETON [Concomitant]
     Indication: DYSTONIA

REACTIONS (3)
  - DYSTONIA [None]
  - NIPPLE DISORDER [None]
  - THROMBOCYTOPENIA [None]
